FAERS Safety Report 16373190 (Version 1)
Quarter: 2019Q2

REPORT INFORMATION
  Report Type: Spontaneous
  Country: US (occurrence: US)
  Receive Date: 20190424
  Receipt Date: 20190424
  Transmission Date: 20190711
  Serious: Yes (Death, Hospitalization)
  Sender: FDA-Public Use
  Company Number: None

PATIENT
  Age: 67 Year
  Sex: Female
  Weight: 65 kg

DRUGS (11)
  1. OXYCODONE [Concomitant]
     Active Substance: OXYCODONE
  2. FLUOXETINE [Concomitant]
     Active Substance: FLUOXETINE HYDROCHLORIDE
  3. MULTIVIT [Concomitant]
     Active Substance: VITAMINS
  4. OBETICHOLIC ACID [Suspect]
     Active Substance: OBETICHOLIC ACID
  5. THIAMINE. [Concomitant]
     Active Substance: THIAMINE
  6. LEVOFLOXACIN. [Concomitant]
     Active Substance: LEVOFLOXACIN
  7. METRONIDAZOLE. [Concomitant]
     Active Substance: METRONIDAZOLE
  8. ZOLPIDEM [Concomitant]
     Active Substance: ZOLPIDEM\ZOLPIDEM TARTRATE
  9. URSODIOL. [Concomitant]
     Active Substance: URSODIOL
  10. GABAPENTIN. [Concomitant]
     Active Substance: GABAPENTIN
  11. MIDODRINE [Concomitant]
     Active Substance: MIDODRINE

REACTIONS (6)
  - Renal failure [None]
  - General physical health deterioration [None]
  - Acute kidney injury [None]
  - Renal tubular necrosis [None]
  - Dialysis [None]
  - Hepatorenal syndrome [None]

NARRATIVE: CASE EVENT DATE: 20180424
